FAERS Safety Report 15740771 (Version 5)
Quarter: 2019Q2

REPORT INFORMATION
  Report Type: Spontaneous
  Country: US (occurrence: US)
  Receive Date: 20181219
  Receipt Date: 20190627
  Transmission Date: 20190711
  Serious: Yes (Other)
  Sender: FDA-Public Use
  Company Number: US-AKORN PHARMACEUTICALS-2018AKN01502

PATIENT
  Age: 26 Year
  Sex: Female
  Weight: 67.57 kg

DRUGS (6)
  1. PROBIOTIC [Concomitant]
     Active Substance: PROBIOTICS NOS
     Dosage: UNK
     Dates: start: 20171201, end: 20180922
  2. POTASSIUM [Concomitant]
     Active Substance: POTASSIUM
     Dosage: UNK
     Dates: start: 20180401, end: 20180922
  3. 1 A DAY DAILY VIT [Concomitant]
     Dosage: UNK
     Dates: start: 20171001, end: 20180922
  4. NUVARING [Concomitant]
     Active Substance: ETHINYL ESTRADIOL\ETONOGESTREL
  5. MYORISAN [Suspect]
     Active Substance: ISOTRETINOIN
     Dosage: 20 MG, 2X/DAY; ^EVERY 12 HOUS^
     Dates: start: 20180302, end: 201807
  6. MYORISAN [Suspect]
     Active Substance: ISOTRETINOIN
     Dosage: 20 UNK
     Dates: start: 201811

REACTIONS (18)
  - Migraine [Unknown]
  - Genital herpes [Not Recovered/Not Resolved]
  - Oedema peripheral [Unknown]
  - Gastrooesophageal reflux disease [Unknown]
  - Nausea [Unknown]
  - Drug exposure before pregnancy [Recovered/Resolved]
  - Otitis media acute [Unknown]
  - False labour [Unknown]
  - Streptococcus test positive [Unknown]
  - Malaise [Not Recovered/Not Resolved]
  - Exposure during pregnancy [Recovered/Resolved]
  - Abdominal pain [Unknown]
  - Major depression [Unknown]
  - Feeling abnormal [Not Recovered/Not Resolved]
  - Vaginal haemorrhage [Recovered/Resolved]
  - Tenderness [Unknown]
  - Vomiting [Unknown]
  - Oral candidiasis [Unknown]

NARRATIVE: CASE EVENT DATE: 2018
